FAERS Safety Report 9189939 (Version 1)
Quarter: 2013Q1

REPORT INFORMATION
  Report Type: Spontaneous
  Country: US (occurrence: None)
  Receive Date: 20130322
  Receipt Date: 20130322
  Transmission Date: 20140127
  Serious: Yes (Hospitalization)
  Sender: FDA-Public Use
  Company Number: None

PATIENT
  Age: 33 Year
  Sex: Male

DRUGS (1)
  1. SULFAMETHOXAZOLE TRIMETHOPRIM [Suspect]
     Indication: INFECTION
     Dosage: ORAL
     Dates: start: 20130222, end: 20130302

REACTIONS (2)
  - Hepatitis fulminant [None]
  - Drug hypersensitivity [None]
